FAERS Safety Report 13445867 (Version 5)
Quarter: 2020Q2

REPORT INFORMATION
  Report Type: Report from Study
  Country: US (occurrence: US)
  Receive Date: 20170417
  Receipt Date: 20200605
  Transmission Date: 20200713
  Serious: Yes (Other)
  Sender: FDA-Public Use
  Company Number: US-AMGEN-USASP2017056472

PATIENT
  Age: 65 Year
  Sex: Male
  Weight: 90.7 kg

DRUGS (1)
  1. ENBREL [Suspect]
     Active Substance: ETANERCEPT
     Indication: RHEUMATOID ARTHRITIS
     Dosage: 50 MG, QWK
     Route: 058
     Dates: start: 201612, end: 202003

REACTIONS (7)
  - Therapeutic product effect decreased [Unknown]
  - Cataract operation [Unknown]
  - Incorrect dose administered [Unknown]
  - Mobility decreased [Unknown]
  - Gait disturbance [Unknown]
  - Rheumatoid arthritis [Unknown]
  - Pain in extremity [Unknown]

NARRATIVE: CASE EVENT DATE: 201703
